FAERS Safety Report 11606407 (Version 1)
Quarter: 2015Q4

REPORT INFORMATION
  Report Type: Spontaneous
  Country: US (occurrence: US)
  Receive Date: 20151007
  Receipt Date: 20151007
  Transmission Date: 20160304
  Serious: No
  Sender: FDA-Public Use
  Company Number: US-TEVA-599451ACC

PATIENT
  Age: 37 Year
  Sex: Female
  Weight: 63.56 kg

DRUGS (2)
  1. NORBE [Concomitant]
     Indication: CONTRACEPTION
  2. PLAN B ONE-STEP [Suspect]
     Active Substance: LEVONORGESTREL
     Indication: POST COITAL CONTRACEPTION
     Dates: start: 20151001, end: 20151001

REACTIONS (1)
  - Intentional product misuse [Unknown]
